FAERS Safety Report 14982744 (Version 2)
Quarter: 2018Q2

REPORT INFORMATION
  Report Type: Spontaneous
  Country: JP (occurrence: JP)
  Receive Date: 20180607
  Receipt Date: 20180622
  Transmission Date: 20180711
  Serious: Yes (Other)
  Sender: FDA-Public Use
  Company Number: JP-TEVA-2018-JP-900075

PATIENT
  Age: 66 Year
  Sex: Male

DRUGS (2)
  1. CAPECITABINE. [Suspect]
     Active Substance: CAPECITABINE
     Indication: COLON CANCER STAGE II
     Dosage: DOSE WAS DECREASED TO 80% FROM THE THIRD CYCLE.
     Route: 048
  2. OXALIPLATIN. [Suspect]
     Active Substance: OXALIPLATIN
     Indication: COLON CANCER STAGE II
     Dosage: DOSE WAS DECREASED TO 80% FROM THE THIRD CYCLE
     Route: 065

REACTIONS (2)
  - Phrenic nerve paralysis [Recovered/Resolved]
  - Neuropathy peripheral [Recovered/Resolved]
